APPROVED DRUG PRODUCT: CHOLEDYL
Active Ingredient: OXTRIPHYLLINE
Strength: 100MG/5ML
Dosage Form/Route: SOLUTION;ORAL
Application: N009268 | Product #012
Applicant: PARKE DAVIS DIV WARNER LAMBERT CO
Approved: Nov 27, 1984 | RLD: No | RS: No | Type: DISCN